FAERS Safety Report 22630005 (Version 1)
Quarter: 2023Q2

REPORT INFORMATION
  Report Type: Spontaneous
  Country: NL (occurrence: NL)
  Receive Date: 20230622
  Receipt Date: 20230622
  Transmission Date: 20230721
  Serious: Yes (Life-Threatening)
  Sender: FDA-Public Use
  Company Number: None

PATIENT
  Sex: Female
  Weight: 35 kg

DRUGS (2)
  1. SERTRALINE [Suspect]
     Active Substance: SERTRALINE HYDROCHLORIDE
     Indication: Anxiety
     Dosage: 50 MG, QD (VARYING FROM 50 TO 100 MG 1X PER DAY)
     Route: 065
     Dates: start: 20170101, end: 20230418
  2. PANTOPRAZOLE SODIUM [Concomitant]
     Active Substance: PANTOPRAZOLE SODIUM
     Dosage: GASTRO-RESISTANT TABLET, 40 MG (MILLIGRAMS)
     Route: 065

REACTIONS (2)
  - Dyspepsia [Recovered/Resolved]
  - Weight decreased [Recovered/Resolved]
